FAERS Safety Report 23380707 (Version 1)
Quarter: 2024Q1

REPORT INFORMATION
  Report Type: Spontaneous
  Country: US (occurrence: US)
  Receive Date: 20240109
  Receipt Date: 20240109
  Transmission Date: 20240410
  Serious: No
  Sender: FDA-Public Use
  Company Number: US-AUROBINDO-AUR-APL-2023-043289

PATIENT
  Sex: Male
  Weight: 75.2 kg

DRUGS (1)
  1. CLOZAPINE [Suspect]
     Active Substance: CLOZAPINE
     Indication: Product used for unknown indication
     Dosage: UNK (100 MG IN MORNING AND 200 MG IN THE EVENING AND THE NEXT DAY THEY WOULD TAKE 100 MG IN THE EVEN
     Route: 065

REACTIONS (1)
  - Intentional product use issue [Unknown]
